FAERS Safety Report 11813620 (Version 1)
Quarter: 2015Q4

REPORT INFORMATION
  Report Type: Spontaneous
  Country: US (occurrence: US)
  Receive Date: 20151209
  Receipt Date: 20151209
  Transmission Date: 20160305
  Serious: No
  Sender: FDA-Public Use
  Company Number: US-FRI-1000081236

PATIENT
  Age: 65 Year
  Sex: Female

DRUGS (3)
  1. AVYCAZ [Suspect]
     Active Substance: AVIBACTAM SODIUM\CEFTAZIDIME
     Indication: MEDIASTINITIS
     Dosage: 0.47G
     Route: 042
     Dates: start: 20151110, end: 20151118
  2. AVYCAZ [Suspect]
     Active Substance: AVIBACTAM SODIUM\CEFTAZIDIME
     Dosage: 0.94G
     Route: 042
     Dates: start: 20151102, end: 20151110
  3. TIGECYCLINE. [Suspect]
     Active Substance: TIGECYCLINE
     Indication: MEDIASTINITIS
     Dosage: 100MG
     Route: 042
     Dates: start: 20151029, end: 20151112

REACTIONS (4)
  - Thrombocytopenia [Recovered/Resolved]
  - Nausea [Recovered/Resolved]
  - Vomiting [Recovered/Resolved]
  - Off label use [Recovered/Resolved]

NARRATIVE: CASE EVENT DATE: 201511
